FAERS Safety Report 21114888 (Version 5)
Quarter: 2023Q2

REPORT INFORMATION
  Report Type: Spontaneous
  Country: US (occurrence: US)
  Receive Date: 20220721
  Receipt Date: 20230512
  Transmission Date: 20230721
  Serious: No
  Sender: FDA-Public Use
  Company Number: US-PFIZER INC-PV202200027466

PATIENT
  Age: 50 Year
  Sex: Female

DRUGS (2)
  1. IBRANCE [Suspect]
     Active Substance: PALBOCICLIB
     Indication: Neoplasm malignant
     Dosage: 125 MG
  2. IBRANCE [Suspect]
     Active Substance: PALBOCICLIB
     Dosage: 100 MG

REACTIONS (14)
  - Gait inability [Unknown]
  - Nervousness [Unknown]
  - Crying [Unknown]
  - Emotional disorder [Unknown]
  - Memory impairment [Unknown]
  - Dyscalculia [Unknown]
  - Conversion disorder [Unknown]
  - Nipple disorder [Unknown]
  - Somnolence [Unknown]
  - Stress [Unknown]
  - Mood altered [Unknown]
  - Peripheral swelling [Unknown]
  - Neoplasm [Unknown]
  - Neoplasm progression [Unknown]
